FAERS Safety Report 9827934 (Version 5)
Quarter: 2014Q3

REPORT INFORMATION
  Report Type: Report from Study
  Country: CL (occurrence: CL)
  Receive Date: 20140117
  Receipt Date: 20140829
  Transmission Date: 20150326
  Serious: Yes (Hospitalization)
  Sender: FDA-Public Use
  Company Number: CL-MERCK-1401CHL007231

PATIENT
  Age: 67 Year
  Sex: Male
  Weight: 63.5 kg

DRUGS (7)
  1. RIBAVIRIN. [Suspect]
     Active Substance: RIBAVIRIN
     Dosage: 2 DF (CAPSULES), QAM
     Route: 048
     Dates: start: 20131003, end: 20140117
  2. RIBAVIRIN. [Suspect]
     Active Substance: RIBAVIRIN
     Dosage: 2 DF (CAPSULES), QPM
     Route: 048
     Dates: start: 20130730, end: 20131002
  3. RIBAVIRIN. [Suspect]
     Active Substance: RIBAVIRIN
     Dosage: 1 DF (CAPSULES), QAM
     Route: 048
     Dates: start: 20140118, end: 20140210
  4. RIBAVIRIN. [Suspect]
     Active Substance: RIBAVIRIN
     Dosage: 1 DF (CAPSULES), QPM
     Route: 048
     Dates: start: 20131003, end: 20140210
  5. BOCEPREVIR [Suspect]
     Active Substance: BOCEPREVIR
     Indication: CHRONIC HEPATITIS C
     Dosage: 4 DF (CAPSULES), TID - MORNING, AFTERNOON, EVENING
     Route: 048
     Dates: start: 20130827, end: 20140210
  6. RIBAVIRIN. [Suspect]
     Active Substance: RIBAVIRIN
     Indication: CHRONIC HEPATITIS C
     Dosage: 3 DF (CAPSULES), QAM
     Route: 048
     Dates: start: 20130730, end: 20131002
  7. PEGINTERFERON ALFA-2A [Suspect]
     Active Substance: PEGINTERFERON ALFA-2A
     Indication: CHRONIC HEPATITIS C
     Dosage: 180 MICROGRAM, QW
     Route: 058
     Dates: start: 20130730, end: 20140204

REACTIONS (1)
  - Pyelonephritis acute [Recovered/Resolved]

NARRATIVE: CASE EVENT DATE: 20140108
